FAERS Safety Report 25398638 (Version 8)
Quarter: 2025Q3

REPORT INFORMATION
  Report Type: Report from Study
  Country: US (occurrence: US)
  Receive Date: 20250604
  Receipt Date: 20250911
  Transmission Date: 20251021
  Serious: Yes (Other)
  Sender: MALLINCKRODT
  Company Number: US-MALLINCKRODT-MNK202502101

PATIENT
  Age: 80 Year
  Sex: Female

DRUGS (2)
  1. CORTICOTROPIN [Suspect]
     Active Substance: CORTICOTROPIN
     Indication: Iridocyclitis
     Route: 058
     Dates: start: 20241102, end: 2024
  2. CORTICOTROPIN [Suspect]
     Active Substance: CORTICOTROPIN
     Dosage: 80 UNITS
     Dates: start: 20241202

REACTIONS (7)
  - Vein rupture [Unknown]
  - Dacryostenosis acquired [Recovering/Resolving]
  - Hypertension [Not Recovered/Not Resolved]
  - Glaucoma [Unknown]
  - Chest pain [Unknown]
  - Visual impairment [Unknown]
  - Injection site haemorrhage [Unknown]
